FAERS Safety Report 19246046 (Version 1)
Quarter: 2021Q2

REPORT INFORMATION
  Report Type: Spontaneous
  Country: US (occurrence: US)
  Receive Date: 20210511
  Receipt Date: 20210511
  Transmission Date: 20210717
  Serious: Yes (Other)
  Sender: FDA-Public Use
  Company Number: None

PATIENT
  Age: 22 Year
  Sex: Male
  Weight: 56 kg

DRUGS (3)
  1. PEMBROLIZUMAB. [Suspect]
     Active Substance: PEMBROLIZUMAB
     Indication: NASOPHARYNGEAL CANCER
     Dosage: ?          OTHER FREQUENCY:VARIED Q3WKS ? 3MO;?
     Route: 041
     Dates: start: 20180420, end: 20200508
  2. EBV CTLS (TABELECLEUCEL) [Concomitant]
     Dates: start: 20171116, end: 20191015
  3. PEMBROLIZUMAB. [Suspect]
     Active Substance: PEMBROLIZUMAB
     Indication: EPSTEIN-BARR VIRUS INFECTION
     Dosage: ?          OTHER FREQUENCY:VARIED Q3WKS ? 3MO;?
     Route: 041
     Dates: start: 20180420, end: 20200508

REACTIONS (12)
  - VIth nerve paralysis [None]
  - Diplopia [None]
  - Anal hypoaesthesia [None]
  - Neurotoxicity [None]
  - Sensory loss [None]
  - Muscle disorder [None]
  - Metastatic neoplasm [None]
  - Hypoaesthesia [None]
  - Muscular weakness [None]
  - Infarction [None]
  - Demyelination [None]
  - Retinal pallor [None]

NARRATIVE: CASE EVENT DATE: 20210204
